FAERS Safety Report 5398022-X (Version None)
Quarter: 2007Q3

REPORT INFORMATION
  Report Type: 
  Country: None (occurrence: None)
  Receive Date: 20070726
  Receipt Date: 20070713
  Transmission Date: 20080115
  Serious: Yes (Hospitalization)
  Sender: FDA-Public Use
  Company Number: JP-ELI_LILLY_AND_COMPANY-JP200707004831

PATIENT
  Age: 71 Year
  Sex: Female

DRUGS (4)
  1. PEMETREXED [Suspect]
     Indication: PLEURAL MESOTHELIOMA MALIGNANT
     Dosage: 500 MG/M2, OTHER
     Route: 042
     Dates: start: 20070618
  2. CISPLATIN [Suspect]
     Indication: PLEURAL MESOTHELIOMA MALIGNANT
     Dosage: 75 MG/M2, OTHER
     Route: 042
     Dates: start: 20070618
  3. FAMOTIDINE [Concomitant]
     Dosage: 40 MG, DAILY (1/D)
     Route: 042
     Dates: start: 20070620, end: 20070623
  4. OMEPRAZOLE [Concomitant]
     Route: 042
     Dates: start: 20070623

REACTIONS (3)
  - CHOLELITHIASIS [None]
  - GASTRITIS [None]
  - PSEUDOMONAL SEPSIS [None]
